FAERS Safety Report 25134874 (Version 2)
Quarter: 2025Q2

REPORT INFORMATION
  Report Type: Spontaneous
  Country: US (occurrence: US)
  Receive Date: 20250328
  Receipt Date: 20250602
  Transmission Date: 20250716
  Serious: Yes (Other)
  Sender: SANOFI AVENTIS
  Company Number: US-SA-2024SA328364

PATIENT
  Age: 48 Year
  Sex: Female

DRUGS (19)
  1. DUPIXENT [Suspect]
     Active Substance: DUPILUMAB
     Indication: Asthma
     Route: 058
     Dates: start: 20240708, end: 20240708
  2. DUPIXENT [Suspect]
     Active Substance: DUPILUMAB
     Dosage: 300 MG, QOW
     Route: 058
     Dates: start: 2024
  3. BUDESONIDE [Concomitant]
     Active Substance: BUDESONIDE
  4. AZELASTINE [Concomitant]
     Active Substance: AZELASTINE
  5. HYDROXYCHLOROQUINE [Concomitant]
     Active Substance: HYDROXYCHLOROQUINE
  6. PANTOPRAZOLE [Concomitant]
     Active Substance: PANTOPRAZOLE
  7. MONTELUKAST [Concomitant]
     Active Substance: MONTELUKAST
  8. IRBESARTAN [Concomitant]
     Active Substance: IRBESARTAN
  9. METHOTREXATE [Concomitant]
     Active Substance: METHOTREXATE
  10. LORAZEPAM [Concomitant]
     Active Substance: LORAZEPAM
  11. DILTIAZEM [Concomitant]
     Active Substance: DILTIAZEM
  12. FOLIC ACID [Concomitant]
     Active Substance: FOLIC ACID
  13. BIOTIN [Concomitant]
     Active Substance: BIOTIN
  14. ATORVASTATIN [Concomitant]
     Active Substance: ATORVASTATIN
  15. NICOTINE [Concomitant]
     Active Substance: NICOTINE
  16. TRAMADOL [Concomitant]
     Active Substance: TRAMADOL
  17. PAROXETINE [Concomitant]
     Active Substance: PAROXETINE
  18. XYZAL [Concomitant]
     Active Substance: LEVOCETIRIZINE DIHYDROCHLORIDE
  19. ONDANSETRON [Concomitant]
     Active Substance: ONDANSETRON

REACTIONS (1)
  - Rheumatoid arthritis [Not Recovered/Not Resolved]

NARRATIVE: CASE EVENT DATE: 20250301
